FAERS Safety Report 21873681 (Version 1)
Quarter: 2023Q1

REPORT INFORMATION
  Report Type: Spontaneous
  Country: US (occurrence: None)
  Receive Date: 20230116
  Receipt Date: 20230116
  Transmission Date: 20230418
  Serious: Yes (Disabling)
  Sender: FDA-Public Use
  Company Number: None

PATIENT
  Age: 43 Year
  Sex: Female
  Weight: 130.5 kg

DRUGS (1)
  1. REBIF REBIDOSE [Suspect]
     Active Substance: INTERFERON BETA-1A
     Indication: Multiple sclerosis
     Dosage: OTHER QUANTITY : 1 INJECTION(S);?OTHER FREQUENCY : 3X A WEEK;?OTHER ROUTE : INJECTION IN ABDOMINAL A
     Route: 050
     Dates: start: 20220501, end: 20230109

REACTIONS (4)
  - Chemical burn [None]
  - Injection site pain [None]
  - Product quality issue [None]
  - Injection site ulcer [None]

NARRATIVE: CASE EVENT DATE: 20230106
